FAERS Safety Report 5590061-9 (Version None)
Quarter: 2008Q1

REPORT INFORMATION
  Report Type: 
  Country: None (occurrence: None)
  Receive Date: 20080114
  Receipt Date: 20080104
  Transmission Date: 20080703
  Serious: Yes (Death, Hospitalization)
  Sender: FDA-Public Use
  Company Number: DK-ELI_LILLY_AND_COMPANY-DK200709002776

PATIENT
  Sex: Male
  Weight: 100 kg

DRUGS (14)
  1. DULOXETINE HYDROCHLORIDE [Suspect]
     Indication: DEPRESSION
     Dosage: 30 MG, DAILY (1/D)
     Route: 048
     Dates: start: 20070501, end: 20070531
  2. CITALOPRAM [Concomitant]
     Dosage: 60 MG, DAILY (1/D)
     Route: 048
  3. SODIUM BICARBONATE [Concomitant]
     Dosage: 500 MG, 3/D
     Route: 048
  4. ETALPHA                            /00454801/ [Concomitant]
     Dosage: UNK, EVERY SEVENTH DAY
     Route: 048
  5. LACTULOSE [Concomitant]
     Dosage: 15 ML, UNKNOWN
     Route: 065
  6. MAGNYL [Concomitant]
     Dosage: 100 MG, ONE EVERY SECOND DAY
     Route: 048
  7. AMLODIPIN                          /00972401/ [Concomitant]
     Dosage: 20 MG, DAILY (1/D)
     Route: 065
  8. DETRUSITOL RETARD [Concomitant]
     Dosage: 2.8 MG, DAILY (1/D)
     Route: 048
  9. NIFEREX [Concomitant]
     Dosage: 100 MG, DAILY (1/D)
     Route: 048
  10. SELO-ZOK [Concomitant]
     Dosage: 100 MG, DAILY (1/D)
     Route: 048
  11. SIMVACOR [Concomitant]
     Dosage: 40 MG, DAILY (1/D)
     Route: 048
  12. TRIMETOPRIM [Concomitant]
     Dosage: 100 MG, DAILY (1/D)
     Route: 048
  13. CIPRAMIL [Concomitant]
     Dosage: 10 MG, AS NEEDED
     Route: 065
  14. IMOCLONE [Concomitant]
     Dosage: 0.5 D/F, EACH EVENING
     Route: 065

REACTIONS (2)
  - DEATH [None]
  - STEVENS-JOHNSON SYNDROME [None]
